FAERS Safety Report 6840366-6 (Version None)
Quarter: 2010Q3

REPORT INFORMATION
  Report Type: 
  Country: None (occurrence: None)
  Receive Date: 20100714
  Receipt Date: 20100709
  Transmission Date: 20110219
  Serious: Yes (Hospitalization)
  Sender: FDA-Public Use
  Company Number: SE-BRISTOL-MYERS SQUIBB COMPANY-15018393

PATIENT
  Age: 63 Year
  Sex: Female

DRUGS (9)
  1. ORENCIA [Suspect]
     Indication: RHEUMATOID ARTHRITIS
     Route: 042
     Dates: start: 20091212
  2. TROMBYL [Concomitant]
     Dosage: 160X1
  3. SIMVASTATIN [Concomitant]
  4. METHOTREXATE [Concomitant]
  5. NAPROXEN [Concomitant]
     Dosage: 500 MGX2
  6. OMEPRAZOLE [Concomitant]
     Dosage: 20MGX1
  7. FOLACIN [Concomitant]
  8. TRAMADOL HCL [Concomitant]
     Dosage: 200 MGX2
  9. AMITRIPTYLINE HCL [Concomitant]

REACTIONS (1)
  - CEREBRAL INFARCTION [None]
